FAERS Safety Report 25330272 (Version 1)
Quarter: 2025Q2

REPORT INFORMATION
  Report Type: Spontaneous
  Country: FR (occurrence: FR)
  Receive Date: 20250519
  Receipt Date: 20250519
  Transmission Date: 20250716
  Serious: Yes (Other)
  Sender: MYLAN
  Company Number: None

PATIENT
  Age: 78 Year
  Sex: Male

DRUGS (24)
  1. SERTRALINE [Suspect]
     Active Substance: SERTRALINE HYDROCHLORIDE
     Indication: Product used for unknown indication
     Dates: start: 20250105, end: 20250105
  2. SERTRALINE [Suspect]
     Active Substance: SERTRALINE HYDROCHLORIDE
     Route: 048
     Dates: start: 20250105, end: 20250105
  3. SERTRALINE [Suspect]
     Active Substance: SERTRALINE HYDROCHLORIDE
     Route: 048
     Dates: start: 20250105, end: 20250105
  4. SERTRALINE [Suspect]
     Active Substance: SERTRALINE HYDROCHLORIDE
     Dates: start: 20250105, end: 20250105
  5. CLOZAPINE [Suspect]
     Active Substance: CLOZAPINE
     Indication: Product used for unknown indication
     Dates: start: 20250105, end: 20250105
  6. CLOZAPINE [Suspect]
     Active Substance: CLOZAPINE
     Route: 048
     Dates: start: 20250105, end: 20250105
  7. CLOZAPINE [Suspect]
     Active Substance: CLOZAPINE
     Route: 048
     Dates: start: 20250105, end: 20250105
  8. CLOZAPINE [Suspect]
     Active Substance: CLOZAPINE
     Dates: start: 20250105, end: 20250105
  9. LEVETIRACETAM [Suspect]
     Active Substance: LEVETIRACETAM
     Indication: Product used for unknown indication
     Dates: start: 20250105, end: 20250105
  10. LEVETIRACETAM [Suspect]
     Active Substance: LEVETIRACETAM
     Route: 048
     Dates: start: 20250105, end: 20250105
  11. LEVETIRACETAM [Suspect]
     Active Substance: LEVETIRACETAM
     Route: 048
     Dates: start: 20250105, end: 20250105
  12. LEVETIRACETAM [Suspect]
     Active Substance: LEVETIRACETAM
     Dates: start: 20250105, end: 20250105
  13. BENSERAZIDE HYDROCHLORIDE\LEVODOPA [4]
     Active Substance: BENSERAZIDE HYDROCHLORIDE\LEVODOPA
     Indication: Product used for unknown indication
  14. BENSERAZIDE HYDROCHLORIDE\LEVODOPA [4]
     Active Substance: BENSERAZIDE HYDROCHLORIDE\LEVODOPA
     Route: 048
  15. BENSERAZIDE HYDROCHLORIDE\LEVODOPA [4]
     Active Substance: BENSERAZIDE HYDROCHLORIDE\LEVODOPA
     Route: 048
  16. BENSERAZIDE HYDROCHLORIDE\LEVODOPA [4]
     Active Substance: BENSERAZIDE HYDROCHLORIDE\LEVODOPA
  17. LEVOTHYROXINE [4]
     Active Substance: LEVOTHYROXINE
     Indication: Product used for unknown indication
  18. LEVOTHYROXINE [4]
     Active Substance: LEVOTHYROXINE
     Route: 048
  19. LEVOTHYROXINE [4]
     Active Substance: LEVOTHYROXINE
     Route: 048
  20. LEVOTHYROXINE [4]
     Active Substance: LEVOTHYROXINE
  21. BENSERAZIDE HYDROCHLORIDE\LEVODOPA [4]
     Active Substance: BENSERAZIDE HYDROCHLORIDE\LEVODOPA
     Indication: Product used for unknown indication
  22. BENSERAZIDE HYDROCHLORIDE\LEVODOPA [4]
     Active Substance: BENSERAZIDE HYDROCHLORIDE\LEVODOPA
     Route: 048
  23. BENSERAZIDE HYDROCHLORIDE\LEVODOPA [4]
     Active Substance: BENSERAZIDE HYDROCHLORIDE\LEVODOPA
     Route: 048
  24. BENSERAZIDE HYDROCHLORIDE\LEVODOPA [4]
     Active Substance: BENSERAZIDE HYDROCHLORIDE\LEVODOPA

REACTIONS (4)
  - Cognitive disorder [Recovered/Resolved]
  - Asthenia [Recovered/Resolved]
  - Wrong product administered [Recovered/Resolved]
  - Wrong patient received product [Recovered/Resolved]

NARRATIVE: CASE EVENT DATE: 20250105
